FAERS Safety Report 24673219 (Version 1)
Quarter: 2024Q4

REPORT INFORMATION
  Report Type: Spontaneous
  Country: US (occurrence: US)
  Receive Date: 20241128
  Receipt Date: 20241128
  Transmission Date: 20250114
  Serious: No
  Sender: IBSA INSTITUT BIOCHIMIQUE
  Company Number: US-IBSA PHARMA INC.-2024IBS000405

PATIENT

DRUGS (1)
  1. TIROSINT [Suspect]
     Active Substance: LEVOTHYROXINE SODIUM
     Indication: Product used for unknown indication

REACTIONS (5)
  - Neuralgia [Unknown]
  - Constipation [Unknown]
  - Malaise [Unknown]
  - Palpitations [Unknown]
  - Nausea [Unknown]
